FAERS Safety Report 7636486-9 (Version None)
Quarter: 2011Q3

REPORT INFORMATION
  Report Type: 
  Country: None (occurrence: None)
  Receive Date: 20110726
  Receipt Date: 20090930
  Transmission Date: 20111222
  Serious: Yes (Other)
  Sender: FDA-Public Use
  Company Number: US-BAYER-200934713NA

PATIENT
  Age: 52 Year
  Sex: Female
  Weight: 48 kg

DRUGS (16)
  1. TRASYLOL [Suspect]
     Dosage: 50 ML/HR, INFUSION RATE
     Route: 042
     Dates: start: 20051028, end: 20051028
  2. TRASYLOL [Suspect]
     Dosage: 200 ML BOLUS
     Dates: start: 20051028
  3. MILRINONE [Concomitant]
     Dosage: UNK
     Route: 042
     Dates: start: 20051028
  4. HEPARIN [Concomitant]
     Dosage: 10000 U, UNK
     Route: 042
     Dates: start: 20051028, end: 20051028
  5. FENTANYL [Concomitant]
  6. TYLENOL 1 [Concomitant]
     Route: 048
  7. VISIPAQUE [Concomitant]
     Indication: CATHETERISATION CARDIAC
     Dosage: 40 ML, UNK
     Route: 042
     Dates: start: 20051027
  8. PLASMA [Concomitant]
     Dosage: 6 U, UNK
     Route: 042
     Dates: start: 20051028, end: 20051028
  9. LEVAQUIN [Concomitant]
     Dosage: UNK
     Route: 042
  10. PLATELETS [Concomitant]
     Dosage: 10 U, UNK
     Route: 042
     Dates: start: 20051028, end: 20051028
  11. RED BLOOD CELLS [Concomitant]
     Dosage: 12 U, UNK
     Route: 042
     Dates: start: 20051028, end: 20051028
  12. ADVAIR DISKUS 100/50 [Concomitant]
  13. SOLU-MEDROL [Concomitant]
     Route: 042
  14. VERSED [Concomitant]
     Route: 042
  15. TRASYLOL [Suspect]
     Indication: MITRAL VALVE REPLACEMENT
     Dosage: 200 ML, PUMP PRIME
     Route: 042
     Dates: start: 20051028, end: 20051028
  16. CLINDAMYCIN [Concomitant]
     Dosage: 900 MG, UNK
     Route: 042
     Dates: start: 20051028

REACTIONS (8)
  - DEPRESSION [None]
  - UNEVALUABLE EVENT [None]
  - PAIN [None]
  - FEAR [None]
  - RENAL FAILURE [None]
  - ANHEDONIA [None]
  - INJURY [None]
  - ANXIETY [None]
